FAERS Safety Report 6039262-6 (Version None)
Quarter: 2009Q1

REPORT INFORMATION
  Report Type: 
  Country: None (occurrence: None)
  Receive Date: 20090115
  Receipt Date: 20090107
  Transmission Date: 20090719
  Serious: Yes (Hospitalization, Disabling)
  Sender: FDA-Public Use
  Company Number: PHEH2006US00793

PATIENT
  Sex: Female

DRUGS (5)
  1. AREDIA [Suspect]
     Indication: METASTASES TO BONE
     Dosage: 90 MG, QMO
     Dates: start: 19990101, end: 20030101
  2. ZOMETA [Suspect]
     Indication: METASTASES TO BONE
     Dosage: 4 MG, QMO
     Dates: start: 20030101, end: 20050501
  3. ADRIAMYCIN + 5-FU [Concomitant]
     Dosage: UNK
     Dates: start: 19930101
  4. DECADRON                                /CAN/ [Concomitant]
     Dosage: 20 MG, UNK
     Dates: start: 19930101
  5. XELODA [Concomitant]

REACTIONS (10)
  - BONE DISORDER [None]
  - DEFORMITY [None]
  - EATING DISORDER [None]
  - EMOTIONAL DISTRESS [None]
  - GINGIVAL INFECTION [None]
  - INFECTION [None]
  - LIFE EXPECTANCY SHORTENED [None]
  - METASTATIC NEOPLASM [None]
  - OSTEONECROSIS [None]
  - PAIN [None]
